FAERS Safety Report 23729323 (Version 1)
Quarter: 2024Q2

REPORT INFORMATION
  Report Type: Spontaneous
  Country: US (occurrence: US)
  Receive Date: 20240410
  Receipt Date: 20240410
  Transmission Date: 20240716
  Serious: No
  Sender: FDA-Public Use
  Company Number: US-FOUNDATIONCONSUMERHC-2024-US-010661

PATIENT
  Age: 24 Year
  Sex: Female
  Weight: 68.04 kg

DRUGS (10)
  1. PLAN B ONE-STEP [Suspect]
     Active Substance: LEVONORGESTREL
     Indication: Post coital contraception
     Dosage: 1 DOSE
     Route: 048
     Dates: start: 20240212, end: 20240212
  2. LITHIUM [Concomitant]
     Active Substance: LITHIUM
  3. Slynd birth control [Concomitant]
     Dosage: MISSED 3 DOSES PRIOR TO PLAN B USE
  4. FISH OIL [Concomitant]
     Active Substance: FISH OIL
  5. Adrenal supplement [Concomitant]
  6. VITAMIN B12 [Concomitant]
     Active Substance: CYANOCOBALAMIN
  7. BIOTIN [Concomitant]
     Active Substance: BIOTIN
  8. VITAMIN D3 [Concomitant]
     Active Substance: CHOLECALCIFEROL
  9. LEVOMEFOLATE CALCIUM [Concomitant]
     Active Substance: LEVOMEFOLATE CALCIUM
  10. AMILORIDE [Concomitant]
     Active Substance: AMILORIDE

REACTIONS (2)
  - Dysmenorrhoea [Not Recovered/Not Resolved]
  - Menstruation delayed [Not Recovered/Not Resolved]

NARRATIVE: CASE EVENT DATE: 20240201
